FAERS Safety Report 5649494-4 (Version None)
Quarter: 2008Q1

REPORT INFORMATION
  Report Type: 
  Country: None (occurrence: None)
  Receive Date: 20080304
  Receipt Date: 20080218
  Transmission Date: 20080703
  Serious: Yes (Other)
  Sender: FDA-Public Use
  Company Number: FR-GENENTECH-256924

PATIENT
  Age: 54 Year
  Sex: Male

DRUGS (1)
  1. AVASTIN [Suspect]
     Indication: COLORECTAL CANCER

REACTIONS (3)
  - BLOOD AMYLASE INCREASED [None]
  - CHOLESTASIS [None]
  - TRANSAMINASES INCREASED [None]
